FAERS Safety Report 4834509-3 (Version None)
Quarter: 2005Q4

REPORT INFORMATION
  Report Type: 
  Country: None (occurrence: None)
  Receive Date: 20051122
  Receipt Date: 20050119
  Transmission Date: 20060501
  Serious: No
  Sender: FDA-Public Use
  Company Number: US-BRISTOL-MYERS SQUIBB COMPANY-12829644

PATIENT
  Age: 63 Year
  Sex: Male
  Weight: 98 kg

DRUGS (2)
  1. PRAVACHOL [Suspect]
     Indication: MITRAL VALVE PROLAPSE
     Route: 048
  2. ASPIRIN [Concomitant]

REACTIONS (1)
  - MYALGIA [None]
